FAERS Safety Report 19299445 (Version 2)
Quarter: 2021Q3

REPORT INFORMATION
  Report Type: Other
  Country: US (occurrence: US)
  Receive Date: 20210524
  Receipt Date: 20210810
  Transmission Date: 20211014
  Serious: Yes (Hospitalization, Other)
  Sender: FDA-Public Use
  Company Number: US-COVIS PHARMA GMBH-2021COV22515

PATIENT
  Age: 0 Day
  Sex: Male
  Weight: 1.43 kg

DRUGS (1)
  1. MAKENA [Suspect]
     Active Substance: HYDROXYPROGESTERONE CAPROATE
     Indication: FOETAL EXPOSURE DURING PREGNANCY
     Route: 064
     Dates: start: 20210122, end: 20210409

REACTIONS (10)
  - Neonatal respiratory distress syndrome [Recovered/Resolved]
  - Poor feeding infant [Recovered/Resolved]
  - Hypothermia [Recovered/Resolved]
  - Apnoea [Recovered/Resolved]
  - Premature baby [Recovered/Resolved]
  - Sepsis [Recovered/Resolved]
  - Bradycardia neonatal [Recovered/Resolved]
  - Hyperbilirubinaemia [Recovered/Resolved]
  - Retinopathy of prematurity [Recovered/Resolved]
  - Metabolic acidosis [Recovered/Resolved]

NARRATIVE: CASE EVENT DATE: 20210414
